FAERS Safety Report 8608207-4 (Version None)
Quarter: 2012Q3

REPORT INFORMATION
  Report Type: 
  Country: None (occurrence: None)
  Receive Date: 20120821
  Receipt Date: 20120814
  Transmission Date: 20120928
  Serious: No
  Sender: FDA-Public Use
  Company Number: US-PFIZER INC-2012148438

PATIENT
  Age: 61 Year
  Sex: Male
  Weight: 79.365 kg

DRUGS (4)
  1. LORTAB [Concomitant]
     Indication: SPINAL CORD INJURY
     Dosage: 10 MG, 4X/DAY
  2. GABAPENTIN [Suspect]
     Indication: PAIN
     Dosage: UNK
     Dates: end: 20090701
  3. AMITRIPTYLINE HYDROCHLORIDE [Suspect]
     Indication: PAIN
     Dosage: 75 MG, DAILY (THREE TABLETS 25MG)
     Route: 048
  4. LYRICA [Suspect]
     Indication: SPINAL CORD INJURY
     Dosage: UNK
     Dates: end: 20110101

REACTIONS (3)
  - DRUG INEFFECTIVE [None]
  - MEMORY IMPAIRMENT [None]
  - SOMNOLENCE [None]
